FAERS Safety Report 17475789 (Version 2)
Quarter: 2021Q3

REPORT INFORMATION
  Report Type: Spontaneous
  Country: US (occurrence: US)
  Receive Date: 20200228
  Receipt Date: 20210811
  Transmission Date: 20211014
  Serious: Yes (Other)
  Sender: FDA-Public Use
  Company Number: US-TEVA-2020-US-1191531

PATIENT
  Age: 59 Year
  Sex: Male

DRUGS (5)
  1. VALSARTAN/HYDROCHLOROTHIAZIDE SOLCO [Suspect]
     Active Substance: HYDROCHLOROTHIAZIDE\VALSARTAN
     Dosage: FREQUENCY: DAILY
     Route: 065
  2. VALSARTAN MYLAN [Suspect]
     Active Substance: VALSARTAN
     Dosage: DOSAGE: 40 MG, TAKE 1 TABLET BY MOUTH DAILY
     Route: 065
  3. VALSARTAN/AMLODIPINE MYLAN [Suspect]
     Active Substance: AMLODIPINE\VALSARTAN
     Dosage: FREQUENCY: DAILY
     Route: 065
  4. VALSARTAN SOLCO [Suspect]
     Active Substance: VALSARTAN
     Dosage: DOSAGE: 40 MG
  5. VALSARTAN AUROBINDO [Suspect]
     Active Substance: VALSARTAN
     Route: 065

REACTIONS (3)
  - Headache [Unknown]
  - Pulmonary mass [Unknown]
  - Brain neoplasm [Unknown]

NARRATIVE: CASE EVENT DATE: 2014
